FAERS Safety Report 16476641 (Version 1)
Quarter: 2019Q2

REPORT INFORMATION
  Report Type: Spontaneous
  Country: AU (occurrence: AU)
  Receive Date: 20190626
  Receipt Date: 20190626
  Transmission Date: 20190711
  Serious: Yes (Other)
  Sender: FDA-Public Use
  Company Number: AU-009507513-1906AUS009525

PATIENT
  Age: 4 Year
  Sex: Female

DRUGS (7)
  1. CALCIPOTRIENE. [Suspect]
     Active Substance: CALCIPOTRIENE
     Indication: DERMATITIS ATOPIC
  2. HYDROCORTISONE. [Suspect]
     Active Substance: HYDROCORTISONE
     Indication: DERMATITIS ATOPIC
  3. METHYLPREDNISOLONE. [Suspect]
     Active Substance: METHYLPREDNISOLONE
     Indication: DERMATITIS ATOPIC
     Dosage: LATER USED EITHER METHYLPREDNISOLONE 0.1% OR MOMETASONE OINTMENT DAILY
  4. MOMETASONE FUROATE. [Suspect]
     Active Substance: MOMETASONE FUROATE
     Dosage: SINGLE ADMISSION TO HOSPITAL FOR 5 DAYS OF MOMETASONE OINTMENT APPLIED UNDER WET DRESSINGS 3 TIMES P
  5. BETAMETHASONE DIPROPIONATE. [Suspect]
     Active Substance: BETAMETHASONE DIPROPIONATE
     Indication: DERMATITIS ATOPIC
  6. PIMECROLIMUS. [Concomitant]
     Active Substance: PIMECROLIMUS
     Indication: DERMATITIS ATOPIC
  7. MOMETASONE FUROATE. [Suspect]
     Active Substance: MOMETASONE FUROATE
     Indication: DERMATITIS ATOPIC
     Dosage: LATER USED EITHER METHYLPREDNISOLONE 0.1% OR MOMETASONE OINTMENT DAILY

REACTIONS (6)
  - Food allergy [Unknown]
  - Steroid withdrawal syndrome [Recovered/Resolved]
  - Product administered to patient of inappropriate age [Unknown]
  - Rhinitis allergic [Unknown]
  - Urinary tract infection [Unknown]
  - Asthma [Unknown]
